FAERS Safety Report 19110961 (Version 2)
Quarter: 2021Q2

REPORT INFORMATION
  Report Type: Report from Study
  Country: MY (occurrence: MY)
  Receive Date: 20210409
  Receipt Date: 20210415
  Transmission Date: 20210717
  Serious: Yes (Life-Threatening, Hospitalization)
  Sender: FDA-Public Use
  Company Number: MY-AMGEN-MYSCT2021053220

PATIENT
  Age: 39 Year
  Sex: Female

DRUGS (6)
  1. PONSTAN [Concomitant]
     Active Substance: MEFENAMIC ACID
     Indication: MIGRAINE
     Dosage: 500 MG, OD/PRN
     Route: 065
     Dates: start: 20210315
  2. ERENUMAB [Suspect]
     Active Substance: ERENUMAB
     Indication: MIGRAINE
     Dosage: UNK
     Route: 058
     Dates: start: 20210315
  3. SODIUM VALPROATE [Concomitant]
     Active Substance: VALPROATE SODIUM
     Indication: MIGRAINE
     Dosage: UNK
     Route: 065
  4. ATORVASTATIN [Concomitant]
     Active Substance: ATORVASTATIN
     Indication: HYPERLIPIDAEMIA
     Dosage: 40 MG ON
     Route: 065
     Dates: start: 2019
  5. PROPRANOLOL [Concomitant]
     Active Substance: PROPRANOLOL HYDROCHLORIDE
     Indication: MIGRAINE
     Dosage: 40 MG, BD/PRN
     Route: 065
     Dates: start: 20210315
  6. NAPROXEN SODIUM. [Concomitant]
     Active Substance: NAPROXEN SODIUM
     Indication: PAIN
     Dosage: 275 MG, OD/PRN
     Route: 065

REACTIONS (1)
  - Loss of consciousness [Recovering/Resolving]

NARRATIVE: CASE EVENT DATE: 20210324
